FAERS Safety Report 12202515 (Version 3)
Quarter: 2016Q2

REPORT INFORMATION
  Report Type: Report from Study
  Country: US (occurrence: US)
  Receive Date: 20160322
  Receipt Date: 20160426
  Transmission Date: 20160815
  Serious: Yes (Hospitalization)
  Sender: FDA-Public Use
  Company Number: US-GILEAD-2016-0204907

PATIENT
  Age: 74 Year
  Sex: Female

DRUGS (8)
  1. AMBRISENTAN [Suspect]
     Active Substance: AMBRISENTAN
     Indication: PRODUCT USED FOR UNKNOWN INDICATION
     Dosage: 10 MG, QD
     Route: 065
     Dates: start: 20130523
  2. SPIRIVA [Concomitant]
     Active Substance: TIOTROPIUM BROMIDE MONOHYDRATE
  3. NITROGLYCERINE [Concomitant]
     Active Substance: NITROGLYCERIN
  4. CARVEDILOL. [Concomitant]
     Active Substance: CARVEDILOL
  5. ADCIRCA [Concomitant]
     Active Substance: TADALAFIL
  6. IMDUR [Concomitant]
     Active Substance: ISOSORBIDE MONONITRATE
  7. NORVASC [Concomitant]
     Active Substance: AMLODIPINE BESYLATE
  8. AMIODARONE [Concomitant]
     Active Substance: AMIODARONE

REACTIONS (2)
  - Dehydration [Unknown]
  - Blood pressure decreased [Recovered/Resolved]
